FAERS Safety Report 5694427-8 (Version None)
Quarter: 2008Q2

REPORT INFORMATION
  Report Type: 
  Country: None (occurrence: None)
  Receive Date: 20080404
  Receipt Date: 20080328
  Transmission Date: 20081010
  Serious: Yes (Hospitalization)
  Sender: FDA-Public Use
  Company Number: PHRM2008FR00791

PATIENT
  Age: 54 Year
  Sex: Female

DRUGS (7)
  1. LAMISIL [Suspect]
     Indication: WOUND INFECTION
     Dosage: 250 MG, QD
     Route: 048
     Dates: start: 20071130, end: 20080103
  2. CORTISONE [Concomitant]
     Indication: WOUND INFECTION
     Dates: start: 20071130
  3. DIFFU K [Concomitant]
  4. ATARAX [Concomitant]
  5. DI-ANTALVIC [Concomitant]
  6. LOVENOX [Concomitant]
  7. CELLUVISC [Concomitant]

REACTIONS (4)
  - ERYTHEMA [None]
  - MAJOR DEPRESSION [None]
  - MOBILITY DECREASED [None]
  - PSORIASIS [None]
